FAERS Safety Report 15969653 (Version 2)
Quarter: 2019Q2

REPORT INFORMATION
  Report Type: Spontaneous
  Country: JP (occurrence: JP)
  Receive Date: 20190215
  Receipt Date: 20190520
  Transmission Date: 20190711
  Serious: Yes (Hospitalization)
  Sender: FDA-Public Use
  Company Number: JP-PFIZER INC-2019070121

PATIENT
  Age: 69 Year
  Sex: Male
  Weight: 50.7 kg

DRUGS (10)
  1. CAMPTO [Suspect]
     Active Substance: IRINOTECAN
     Dosage: 161 MG, 1X/DAY
     Route: 041
     Dates: start: 20170810, end: 20170810
  2. LANSOPRAZOLE. [Concomitant]
     Active Substance: LANSOPRAZOLE
     Dosage: UNK
     Route: 048
  3. CAMPTO [Suspect]
     Active Substance: IRINOTECAN
     Dosage: 161 MG, 1X/DAY
     Route: 041
     Dates: start: 20170914, end: 20170914
  4. EUGLUCON [Concomitant]
     Active Substance: GLYBURIDE
     Dosage: UNK
     Route: 048
  5. LUNESTA [Concomitant]
     Active Substance: ESZOPICLONE
     Dosage: UNK
     Route: 048
  6. CAMPTO [Suspect]
     Active Substance: IRINOTECAN
     Dosage: 161 MG, 1X/DAY
     Route: 041
     Dates: start: 20170831, end: 20170831
  7. GLIMICRON [Concomitant]
     Active Substance: GLICLAZIDE
     Dosage: UNK
     Route: 048
  8. CAMPTO [Suspect]
     Active Substance: IRINOTECAN
     Dosage: 161 MG, 1X/DAY
     Route: 041
     Dates: start: 20170817, end: 20170817
  9. CAMPTO [Suspect]
     Active Substance: IRINOTECAN
     Indication: SMALL CELL LUNG CANCER
     Dosage: 161 MG/BODY (101.6 MG/M2)
     Route: 041
     Dates: start: 20170803, end: 20170803
  10. CAMPTO [Suspect]
     Active Substance: IRINOTECAN
     Dosage: 161 MG, 1X/DAY
     Route: 041
     Dates: start: 20170907, end: 20170907

REACTIONS (3)
  - Liver disorder [Unknown]
  - Constipation [Unknown]
  - Interstitial lung disease [Recovering/Resolving]

NARRATIVE: CASE EVENT DATE: 20170928
